FAERS Safety Report 4443656-X (Version None)
Quarter: 2004Q3

REPORT INFORMATION
  Report Type: 
  Country: None (occurrence: None)
  Receive Date: 20040908
  Receipt Date: 20031219
  Transmission Date: 20050211
  Serious: Yes (Hospitalization)
  Sender: FDA-Public Use
  Company Number: GB-GLAXOSMITHKLINE-B0318240A

PATIENT
  Age: 69 Year
  Sex: Male
  Weight: 72.3 kg

DRUGS (7)
  1. SALMETEROL/FLUTICASONE PROPIONATE 50/500UG [Suspect]
     Route: 055
     Dates: start: 20010829
  2. ASPIRIN [Concomitant]
     Dosage: 75MG PER DAY
  3. QUININE SULPHATE [Concomitant]
     Dosage: 300MG PER DAY
  4. DIGOXIN [Concomitant]
     Dosage: 250MCG PER DAY
  5. RAMIPRIL [Concomitant]
     Dosage: 10MG PER DAY
  6. ATORVASTATIN CALCIUM [Concomitant]
     Dosage: 20MG AT NIGHT
  7. BENDROFLUAZIDE [Concomitant]
     Dosage: 2.5MG PER DAY

REACTIONS (5)
  - ATRIAL FIBRILLATION [None]
  - CHEST PAIN [None]
  - CORONARY ARTERY DISEASE [None]
  - MYOCARDIAL ISCHAEMIA [None]
  - SUBDURAL HAEMATOMA [None]
